FAERS Safety Report 14175582 (Version 4)
Quarter: 2018Q1

REPORT INFORMATION
  Report Type: Report from Study
  Country: US (occurrence: US)
  Receive Date: 20171109
  Receipt Date: 20180131
  Transmission Date: 20180508
  Serious: Yes (Other)
  Sender: FDA-Public Use
  Company Number: US-BAYER-2017-194799

PATIENT
  Age: 55 Year
  Sex: Female

DRUGS (1)
  1. NEXAVAR [Suspect]
     Active Substance: SORAFENIB
     Indication: HEPATOCELLULAR CARCINOMA
     Dosage: 400 MG, BID
     Route: 048
     Dates: start: 20171006

REACTIONS (21)
  - Loss of personal independence in daily activities [Recovering/Resolving]
  - Depressed mood [Recovering/Resolving]
  - Abdominal distension [None]
  - Abdominal pain upper [None]
  - Rash [Recovered/Resolved]
  - Vomiting [Recovered/Resolved]
  - Rash [None]
  - Diarrhoea [None]
  - Mobility decreased [None]
  - Headache [Recovered/Resolved]
  - Pre-existing condition improved [Recovering/Resolving]
  - Erythema [None]
  - Decreased activity [Recovering/Resolving]
  - Fatigue [None]
  - Dry skin [None]
  - Diarrhoea [Recovered/Resolved]
  - Stomatitis [Recovered/Resolved]
  - Nausea [Recovered/Resolved]
  - Diarrhoea [None]
  - Alopecia [None]
  - Weight increased [None]

NARRATIVE: CASE EVENT DATE: 2017
